FAERS Safety Report 7337794-1 (Version None)
Quarter: 2011Q1

REPORT INFORMATION
  Report Type: 
  Country: None (occurrence: None)
  Receive Date: 20110224
  Receipt Date: 20110214
  Transmission Date: 20110831
  Serious: Yes (Other)
  Sender: FDA-Public Use
  Company Number: 2011000774

PATIENT
  Age: 72 Year
  Sex: Male

DRUGS (6)
  1. ALLOPURINOL [Concomitant]
  2. TRAMADOL (TRAMADOL) [Suspect]
     Indication: PAIN
     Dosage: 100 MG, 4 IN 1 D, ORAL
     Route: 048
     Dates: start: 20110120, end: 20110124
  3. PARACETAMOL (PARACETAMOL) [Concomitant]
  4. IBUPROFEN [Concomitant]
  5. BISOPROLOL (BISOPROLOL) [Concomitant]
  6. TARCEVA [Suspect]
     Indication: NON-SMALL CELL LUNG CANCER
     Dosage: 150 MG, 1 IN 1 D, ORAL
     Route: 048
     Dates: start: 20101220

REACTIONS (4)
  - RESTLESS LEGS SYNDROME [None]
  - MYOCLONUS [None]
  - SKIN REACTION [None]
  - METASTASES TO CENTRAL NERVOUS SYSTEM [None]
